FAERS Safety Report 5466070-7 (Version None)
Quarter: 2007Q3

REPORT INFORMATION
  Report Type: 
  Country: None (occurrence: None)
  Receive Date: 20070919
  Receipt Date: 20070907
  Transmission Date: 20080115
  Serious: Yes (Hospitalization, Other)
  Sender: FDA-Public Use
  Company Number: 2007-01825

PATIENT
  Age: 71 Year
  Sex: Male
  Weight: 64 kg

DRUGS (21)
  1. VELCADE [Suspect]
     Indication: MULTIPLE MYELOMA
     Dosage: 2.20 MG, INTRAVENOUS
     Route: 042
     Dates: start: 20070327, end: 20070521
  2. PREDNISOLONE [Concomitant]
  3. ITRACONAZOLE [Concomitant]
  4. ALLOPURINOL [Concomitant]
  5. MUCOSTA (REBAMIPIDE) [Concomitant]
  6. ZANTAC 150 [Concomitant]
  7. SODIUM BICARBONATE IN PLASTIC CONTAINER [Concomitant]
  8. ADOFEED (FLURBIPROFEN) [Concomitant]
  9. LOXONIN (LOXOPROFEN SODIUM) [Concomitant]
  10. ZOVIRAX [Concomitant]
  11. AMOBAN (ZOPICLONE) [Concomitant]
  12. BAKTAR (SULFAMETHOXAZOLE,  TRIMETHOPRIM) [Concomitant]
  13. PURSENNID (SENNA LEAF) [Concomitant]
  14. POLARAMINE [Concomitant]
  15. SODIUM BICARBONATE [Concomitant]
  16. LASIX [Concomitant]
  17. PENTAZOCINE LACTATE [Concomitant]
  18. DECADRON [Concomitant]
  19. MAINTATE (BISOPROLOL FUMARATE) [Concomitant]
  20. SOLU-CORTEF [Concomitant]
  21. LASIX [Concomitant]

REACTIONS (12)
  - ATRIAL FIBRILLATION [None]
  - BLOOD LACTATE DEHYDROGENASE INCREASED [None]
  - C-REACTIVE PROTEIN INCREASED [None]
  - DIARRHOEA [None]
  - DISEASE PROGRESSION [None]
  - HYPOVOLAEMIA [None]
  - LYMPHOCYTE COUNT DECREASED [None]
  - PLATELET COUNT DECREASED [None]
  - PLEURAL EFFUSION [None]
  - PRODUCTIVE COUGH [None]
  - PYREXIA [None]
  - RASH [None]
